FAERS Safety Report 4462928-6 (Version None)
Quarter: 2004Q3

REPORT INFORMATION
  Report Type: 
  Country: None (occurrence: None)
  Receive Date: 20040927
  Receipt Date: 20040909
  Transmission Date: 20050211
  Serious: Yes (Hospitalization)
  Sender: FDA-Public Use
  Company Number: S04-SWE-04214-01

PATIENT
  Age: 12 Year
  Sex: Female

DRUGS (3)
  1. CIPRALEX (ESCITALOPRAM) [Suspect]
     Indication: OVERDOSE
     Dosage: 220 MG ONCE PO
     Route: 048
  2. CIPRALEX (ESCITALOPRAM) [Suspect]
     Indication: OVERDOSE
     Dosage: 20 MG QD PO
     Route: 048
  3. REMERON [Suspect]
     Indication: OVERDOSE
     Dosage: 90 MG ONCE

REACTIONS (2)
  - LOSS OF CONSCIOUSNESS [None]
  - OVERDOSE [None]
